FAERS Safety Report 4313881-7 (Version None)
Quarter: 2004Q1

REPORT INFORMATION
  Report Type: 
  Country: None (occurrence: None)
  Receive Date: 20040305
  Receipt Date: 20031128
  Transmission Date: 20041129
  Serious: Yes (Hospitalization)
  Sender: FDA-Public Use
  Company Number: USA-2003-0013562

PATIENT
  Age: 51 Year
  Sex: Male
  Weight: 124 kg

DRUGS (8)
  1. CHIROCAINE [Suspect]
     Indication: POST PROCEDURAL PAIN
     Dosage: 288 ML, DAILY, OTHER
     Route: 050
     Dates: start: 20030514, end: 20030515
  2. FOSINOPRIL SODIUM [Concomitant]
  3. ATORVASTATIN CALCIUM [Concomitant]
  4. ISOPHANE INSULIN [Concomitant]
  5. INSULIN HUMAN (INSULIN HUMAN) [Concomitant]
  6. PARACETAMOL [Concomitant]
  7. IBUPROFEN [Concomitant]
  8. CELECOXIB (CELECOXIB) [Concomitant]

REACTIONS (2)
  - BLISTER [None]
  - OEDEMA PERIPHERAL [None]
